FAERS Safety Report 15636970 (Version 1)
Quarter: 2018Q4

REPORT INFORMATION
  Report Type: Spontaneous
  Country: US (occurrence: US)
  Receive Date: 20181120
  Receipt Date: 20181120
  Transmission Date: 20190205
  Serious: No
  Sender: FDA-Public Use
  Company Number: US-SA-2018SA317454

PATIENT
  Age: 14 Year
  Sex: Male

DRUGS (8)
  1. FABRAZYME [Suspect]
     Active Substance: AGALSIDASE BETA
     Dosage: 1 MG/KG, QOW
     Route: 041
     Dates: start: 20070817
  2. FABRAZYME [Suspect]
     Active Substance: AGALSIDASE BETA
     Indication: FABRY^S DISEASE
     Dosage: 1 MG/KG, QOW
     Route: 041
     Dates: start: 200710
  3. FABRAZYME [Suspect]
     Active Substance: AGALSIDASE BETA
     Dosage: 1 MG/KG, QOW
     Route: 041
     Dates: start: 200709
  4. FABRAZYME [Suspect]
     Active Substance: AGALSIDASE BETA
     Dosage: 35 MG, QW
     Route: 041
     Dates: start: 20150824
  5. BENADRYL [Concomitant]
     Active Substance: DIPHENHYDRAMINE HYDROCHLORIDE
     Indication: PREMEDICATION
     Dosage: UNK
     Dates: start: 200710
  6. FABRAZYME [Suspect]
     Active Substance: AGALSIDASE BETA
     Dosage: 55 MG ONE WEEK AND 10 MG THE OTHER WEEK
     Route: 041
  7. ALBUTEROL [SALBUTAMOL] [Concomitant]
     Active Substance: ALBUTEROL
     Indication: PREMEDICATION
     Dosage: UNK
     Dates: start: 200710
  8. MOTRIN [Concomitant]
     Active Substance: IBUPROFEN
     Indication: PREMEDICATION
     Dosage: UNK
     Dates: start: 200710

REACTIONS (1)
  - Chills [Unknown]

NARRATIVE: CASE EVENT DATE: 20071015
